FAERS Safety Report 7280581-3 (Version None)
Quarter: 2011Q1

REPORT INFORMATION
  Report Type: 
  Country: None (occurrence: None)
  Receive Date: 20110208
  Receipt Date: 20110127
  Transmission Date: 20110831
  Serious: Yes (Death, Hospitalization)
  Sender: FDA-Public Use
  Company Number: JP-ACTELION-A-CH2011-44400

PATIENT
  Age: 3 Year
  Sex: Male

DRUGS (7)
  1. FUROSEMIDE [Concomitant]
  2. OXYGEN [Concomitant]
  3. HYDROCHLOROTHIAZIDE [Concomitant]
  4. TRACLEER [Suspect]
     Indication: PULMONARY ARTERIAL HYPERTENSION
     Dosage: 15.63 MG, BID
     Route: 048
     Dates: start: 20070308, end: 20100407
  5. BERAPROST SODIUM [Concomitant]
  6. SPIRONOLACTONE [Concomitant]
  7. SILDENAFIL CITRATE [Concomitant]

REACTIONS (5)
  - PALLOR [None]
  - BRAIN NATRIURETIC PEPTIDE INCREASED [None]
  - VOMITING [None]
  - CONDITION AGGRAVATED [None]
  - CARDIAC FAILURE [None]
